FAERS Safety Report 7622885-8 (Version None)
Quarter: 2011Q3

REPORT INFORMATION
  Report Type: 
  Country: None (occurrence: None)
  Receive Date: 20110720
  Receipt Date: 20110707
  Transmission Date: 20111222
  Serious: Yes (Hospitalization)
  Sender: FDA-Public Use
  Company Number: US-ELI_LILLY_AND_COMPANY-US201106004807

PATIENT
  Sex: Female

DRUGS (5)
  1. FORTEO [Suspect]
     Indication: OSTEOPOROSIS
     Dosage: 20 UG, QD
     Route: 065
     Dates: start: 20110602, end: 20110611
  2. LEVOTHYROXINE SODIUM [Concomitant]
  3. FORTEO [Suspect]
     Dosage: 20 UG, QD
     Dates: start: 20110705
  4. METFORMIN HCL [Concomitant]
     Dosage: 1 DF, QD
     Route: 065
  5. ANTIHYPERTENSIVES [Concomitant]
     Route: 065

REACTIONS (10)
  - DIARRHOEA [None]
  - EYE PAIN [None]
  - EYE SWELLING [None]
  - VOMITING [None]
  - ABDOMINAL DISCOMFORT [None]
  - FAECES DISCOLOURED [None]
  - MALAISE [None]
  - OCULAR HYPERAEMIA [None]
  - PYREXIA [None]
  - EYE IRRITATION [None]
